FAERS Safety Report 8509336-6 (Version None)
Quarter: 2012Q3

REPORT INFORMATION
  Report Type: 
  Country: None (occurrence: None)
  Receive Date: 20120713
  Receipt Date: 20120702
  Transmission Date: 20120928
  Serious: Yes (Hospitalization)
  Sender: FDA-Public Use
  Company Number: US-PERRIGO-12US005713

PATIENT
  Age: 33 Year
  Sex: Male

DRUGS (1)
  1. NAPROXEN SODIUM [Suspect]
     Indication: MIGRAINE
     Dosage: UNK
     Route: 048

REACTIONS (5)
  - CHEST PAIN [None]
  - RASH PRURITIC [None]
  - KOUNIS SYNDROME [None]
  - DIZZINESS [None]
  - ACUTE MYOCARDIAL INFARCTION [None]
